FAERS Safety Report 9789847 (Version 1)
Quarter: 2013Q4

REPORT INFORMATION
  Report Type: Spontaneous
  Country: US (occurrence: None)
  Receive Date: 20131230
  Receipt Date: 20131230
  Transmission Date: 20140711
  Serious: Yes (Disabling)
  Sender: FDA-Public Use
  Company Number: None

PATIENT
  Age: 82 Year
  Sex: Male
  Weight: 88.45 kg

DRUGS (1)
  1. SYMBICORT [Suspect]
     Dosage: 2 PUFFS TWICE DAILY

REACTIONS (2)
  - Sputum discoloured [None]
  - Respiratory rate decreased [None]
